FAERS Safety Report 5234795-4 (Version None)
Quarter: 2007Q1

REPORT INFORMATION
  Report Type: 
  Country: None (occurrence: None)
  Receive Date: 20070209
  Receipt Date: 20070131
  Transmission Date: 20070707
  Serious: Yes (Life-Threatening, Hospitalization, Other)
  Sender: FDA-Public Use
  Company Number: JP-PFIZER INC-2006150974

PATIENT
  Sex: Male
  Weight: 47 kg

DRUGS (5)
  1. SULPERAZON [Suspect]
     Indication: CHOLANGITIS
     Route: 042
     Dates: start: 20060320, end: 20061207
  2. POLYCARBOPHIL CALCIUM [Concomitant]
     Route: 048
  3. DAI-KENCHU-TO [Concomitant]
     Route: 048
  4. MAGNESIUM OXIDE [Concomitant]
     Route: 048
  5. DILTIAZEM HCL [Concomitant]
     Route: 048

REACTIONS (6)
  - CONTUSION [None]
  - DEPRESSED LEVEL OF CONSCIOUSNESS [None]
  - FALL [None]
  - FLUSHING [None]
  - HEAD INJURY [None]
  - SHOCK [None]
